FAERS Safety Report 10222319 (Version 1)
Quarter: 2014Q2

REPORT INFORMATION
  Report Type: Spontaneous
  Country: JP (occurrence: JP)
  Receive Date: 20140606
  Receipt Date: 20140606
  Transmission Date: 20141212
  Serious: Yes (Hospitalization)
  Sender: FDA-Public Use
  Company Number: JP-JNJFOC-20140518769

PATIENT
  Age: 82 Year
  Sex: Female
  Weight: 52 kg

DRUGS (19)
  1. FLORID [Suspect]
     Route: 048
  2. FLORID [Suspect]
     Indication: OESOPHAGEAL CANDIDIASIS
     Route: 048
     Dates: start: 20140421, end: 20140423
  3. WARFARIN [Interacting]
     Indication: PRODUCT USED FOR UNKNOWN INDICATION
     Route: 048
     Dates: end: 20140509
  4. PARIET [Concomitant]
     Route: 048
     Dates: start: 20140427
  5. PARIET [Concomitant]
     Route: 048
     Dates: start: 20140421
  6. KLARICID [Concomitant]
     Route: 048
     Dates: start: 20140427
  7. KLARICID [Concomitant]
     Route: 048
     Dates: start: 20140421
  8. SAWACILLIN [Concomitant]
     Route: 048
     Dates: start: 20140421
  9. SAWACILLIN [Concomitant]
     Route: 048
     Dates: start: 20140427
  10. PRAVASTATIN SODIUM [Concomitant]
     Route: 048
  11. LUPRAC [Concomitant]
     Route: 048
  12. CELECOX [Concomitant]
     Dosage: 2 DF
     Route: 048
  13. LANSOPRAZOLE [Concomitant]
     Route: 048
  14. EVISTA [Concomitant]
     Route: 048
  15. POLYFUL [Concomitant]
     Route: 048
  16. HALCION [Concomitant]
     Route: 048
  17. POLAPREZINC [Concomitant]
     Route: 048
  18. FLUVOXAMINE MALEATE [Concomitant]
     Route: 048
  19. BIOFERMIN [Concomitant]
     Route: 048

REACTIONS (3)
  - Gastrointestinal polyp haemorrhage [Recovering/Resolving]
  - International normalised ratio increased [Recovering/Resolving]
  - Drug interaction [Recovering/Resolving]
